FAERS Safety Report 20986192 (Version 1)
Quarter: 2022Q2

REPORT INFORMATION
  Report Type: Spontaneous
  Country: US (occurrence: None)
  Receive Date: 20220617
  Receipt Date: 20220617
  Transmission Date: 20220721
  Serious: Yes (Other)
  Sender: FDA-Public Use
  Company Number: None

PATIENT
  Age: 68 Year
  Sex: Female

DRUGS (12)
  1. AMBRISENTAN [Suspect]
     Active Substance: AMBRISENTAN
     Indication: Pulmonary arterial hypertension
     Dosage: 5MG QD ORAL?
     Route: 048
     Dates: start: 20200917
  2. TADALAFIL [Concomitant]
     Active Substance: TADALAFIL
  3. cosopt opht drop [Concomitant]
  4. ASPIRIN [Concomitant]
     Active Substance: ASPIRIN
  5. TRAMADOL [Concomitant]
     Active Substance: TRAMADOL
  6. LASIX [Concomitant]
     Active Substance: FUROSEMIDE
  7. HYDROXYCHLOROQUINE [Concomitant]
     Active Substance: HYDROXYCHLOROQUINE
  8. NIFEDIPINE [Concomitant]
     Active Substance: NIFEDIPINE
  9. ATORVASTATIN [Concomitant]
     Active Substance: ATORVASTATIN
  10. FAMOTIDINE [Concomitant]
     Active Substance: FAMOTIDINE
  11. VITAMINS [Concomitant]
     Active Substance: VITAMINS
  12. VITAMIN D2 [Concomitant]
     Active Substance: ERGOCALCIFEROL

REACTIONS (2)
  - Skin laceration [None]
  - Hand fracture [None]

NARRATIVE: CASE EVENT DATE: 20220602
